FAERS Safety Report 9219264 (Version 1)
Quarter: 2013Q2

REPORT INFORMATION
  Report Type: Spontaneous
  Country: PL (occurrence: PL)
  Receive Date: 20130409
  Receipt Date: 20130409
  Transmission Date: 20140414
  Serious: Yes (Other)
  Sender: FDA-Public Use
  Company Number: PL-ASTELLAS-2013EU003230

PATIENT
  Age: 39 Year
  Sex: Male

DRUGS (3)
  1. MYCAMINE [Suspect]
     Indication: CANDIDA INFECTION
     Dosage: 100 MG FOR 14 DAYS
     Route: 042
  2. MYCAMINE [Suspect]
     Dosage: 200 MG FOR 21 DAYS
     Route: 042
  3. ECALTA [Concomitant]
     Dosage: UNK
     Route: 065
     Dates: start: 20130325

REACTIONS (2)
  - Drug ineffective [Unknown]
  - Condition aggravated [Unknown]
